FAERS Safety Report 19606468 (Version 1)
Quarter: 2021Q3

REPORT INFORMATION
  Report Type: Spontaneous
  Country: GB (occurrence: GB)
  Receive Date: 20210725
  Receipt Date: 20210725
  Transmission Date: 20211014
  Serious: Yes (Hospitalization)
  Sender: FDA-Public Use
  Company Number: GB-DEXPHARM-20211171

PATIENT
  Age: 40 Year

DRUGS (4)
  1. TROSPIUM [Suspect]
     Active Substance: TROSPIUM
     Dosage: BEFORE FOOD 2 SEPARATED DOSES
  2. FERROUS FUMARATE [Concomitant]
     Active Substance: FERROUS FUMARATE
  3. OMEPRAZOLE. [Suspect]
     Active Substance: OMEPRAZOLE
  4. BISACODYL. [Concomitant]
     Active Substance: BISACODYL
     Dosage: AT NIGHT

REACTIONS (1)
  - Arrhythmia [Recovered/Resolved]
